FAERS Safety Report 10497668 (Version 1)
Quarter: 2014Q4

REPORT INFORMATION
  Report Type: Spontaneous
  Country: US (occurrence: None)
  Receive Date: 20141003
  Receipt Date: 20141003
  Transmission Date: 20150528
  Serious: Yes (Death)
  Sender: FDA-Public Use
  Company Number: None

PATIENT
  Age: 77 Year
  Sex: Male
  Weight: 79.3 kg

DRUGS (2)
  1. CARBOPLATIN. [Suspect]
     Active Substance: CARBOPLATIN
     Dates: end: 20140623
  2. TAXOL [Suspect]
     Active Substance: PACLITAXEL
     Dates: end: 20140623

REACTIONS (19)
  - Hypovolaemia [None]
  - Vocal cord paralysis [None]
  - Pneumothorax [None]
  - Acute respiratory distress syndrome [None]
  - Pleural effusion [None]
  - Respiratory failure [None]
  - Postoperative renal failure [None]
  - Thrombocytopenia [None]
  - Post procedural complication [None]
  - Continuous haemodiafiltration [None]
  - Septic shock [None]
  - Post procedural sepsis [None]
  - Cardiac arrest [None]
  - Atrial fibrillation [None]
  - Renal tubular necrosis [None]
  - Atelectasis [None]
  - Device leakage [None]
  - International normalised ratio increased [None]
  - Thrombosis in device [None]

NARRATIVE: CASE EVENT DATE: 20140805
